FAERS Safety Report 12974206 (Version 2)
Quarter: 2016Q4

REPORT INFORMATION
  Report Type: Spontaneous
  Country: US (occurrence: US)
  Receive Date: 20161125
  Receipt Date: 20161226
  Transmission Date: 20170207
  Serious: Yes (Other)
  Sender: FDA-Public Use
  Company Number: US-JNJFOC-20161118347

PATIENT
  Sex: Female
  Weight: 58.97 kg

DRUGS (6)
  1. RIBAVIRIN. [Suspect]
     Active Substance: RIBAVIRIN
     Indication: HEPATITIS C
     Route: 065
     Dates: start: 201405, end: 201410
  2. ZYRTEC [Interacting]
     Active Substance: CETIRIZINE HYDROCHLORIDE
     Indication: PRURITUS
     Dosage: 2-3 TABLETS IN THE EVENING
     Route: 065
     Dates: start: 2014, end: 2014
  3. ZYRTEC [Interacting]
     Active Substance: CETIRIZINE HYDROCHLORIDE
     Route: 065
  4. SOVALDI [Suspect]
     Active Substance: SOFOSBUVIR
     Indication: HEPATITIS C
     Route: 065
     Dates: start: 201405, end: 201410
  5. OLYSIO [Suspect]
     Active Substance: SIMEPREVIR
     Indication: HEPATITIS C
     Route: 048
     Dates: start: 201405, end: 201410
  6. CLARITIN [Interacting]
     Active Substance: LORATADINE
     Indication: PRURITUS
     Dosage: 3 IN THE MORNING
     Route: 065
     Dates: start: 2014, end: 2014

REACTIONS (12)
  - Arrhythmia [Not Recovered/Not Resolved]
  - Asthenia [Not Recovered/Not Resolved]
  - Drug interaction [Not Recovered/Not Resolved]
  - Infection [Unknown]
  - Fatigue [Not Recovered/Not Resolved]
  - Palpitations [Recovered/Resolved]
  - Insomnia [Not Recovered/Not Resolved]
  - Rash pruritic [Recovered/Resolved]
  - Chest pain [Recovered/Resolved]
  - Adverse event [Not Recovered/Not Resolved]
  - Tremor [Recovered/Resolved]
  - Anxiety [Recovered/Resolved]

NARRATIVE: CASE EVENT DATE: 2014
